FAERS Safety Report 8006696 (Version 2)
Quarter: 2013Q4

REPORT INFORMATION
  Report Type: Spontaneous
  Country: US (occurrence: US)
  Receive Date: 20110623
  Receipt Date: 20131125
  Transmission Date: 20140711
  Serious: Yes (Other)
  Sender: FDA-Public Use
  Company Number: US-JNJFOC-20110607545

PATIENT
  Age: 57 Year
  Sex: Male
  Weight: 111.13 kg

DRUGS (7)
  1. DURAGESIC [Suspect]
     Indication: PAIN
     Dosage: 100 UG/HR/TWO 50 UG/HR PATCHES EVERY 48 HOURS
     Route: 062
     Dates: start: 2002
  2. DURAGESIC [Suspect]
     Indication: PAIN
     Dosage: 100 UG/HR/TWO 50 UG/HR PATCHES EVERY 48 HOURS
     Route: 062
  3. BIOCLUSIVE DRESSINGS [Suspect]
     Indication: PRODUCT USED FOR UNKNOWN INDICATION
     Route: 065
  4. OXYCODONE [Concomitant]
     Indication: PAIN
     Dosage: 50 MG/ UPTO 2 PER DAY
     Route: 048
     Dates: start: 2002
  5. UNKNOWN MEDICATION [Concomitant]
     Indication: PAIN
     Dosage: 10/325 MG TABLETS/UPTO 6 PER DAY/AS NEEDED
     Route: 048
     Dates: start: 2002
  6. CARDURA [Concomitant]
     Indication: CARDIAC DISORDER
     Route: 048
  7. LISINOPRIL [Concomitant]
     Indication: CARDIAC DISORDER
     Route: 048

REACTIONS (10)
  - Dependence [Recovered/Resolved]
  - Drug withdrawal syndrome [Recovered/Resolved]
  - Dermatitis contact [Recovered/Resolved]
  - Wrong technique in drug usage process [Not Recovered/Not Resolved]
  - Hyperaesthesia [Recovered/Resolved]
  - Discomfort [Recovered/Resolved]
  - Feeling abnormal [Recovered/Resolved]
  - Inappropriate schedule of drug administration [Recovered/Resolved]
  - Product quality issue [Unknown]
  - Product adhesion issue [Unknown]
